FAERS Safety Report 12492276 (Version 1)
Quarter: 2016Q2

REPORT INFORMATION
  Report Type: Spontaneous
  Country: FR (occurrence: FR)
  Receive Date: 20160623
  Receipt Date: 20160623
  Transmission Date: 20160815
  Serious: Yes (Hospitalization)
  Sender: FDA-Public Use
  Company Number: FR-PFIZER INC-2016304644

PATIENT
  Age: 64 Year
  Sex: Female

DRUGS (9)
  1. OMEPRAZOLE. [Concomitant]
     Active Substance: OMEPRAZOLE
  2. KIVEXA [Concomitant]
     Active Substance: ABACAVIR SULFATE\LAMIVUDINE
     Dosage: 600 MG / 300 MG
     Route: 048
  3. MEROPENEM. [Concomitant]
     Active Substance: MEROPENEM
     Indication: IMMUNOSUPPRESSION
  4. PREZISTA [Concomitant]
     Active Substance: DARUNAVIR ETHANOLATE
     Dosage: 600 MG, UNK
     Route: 048
  5. CASPOFUNGIN [Concomitant]
     Active Substance: CASPOFUNGIN
     Indication: FISTULA OF SMALL INTESTINE
  6. ZYVOXID [Suspect]
     Active Substance: LINEZOLID
     Indication: KLEBSIELLA INFECTION
     Dosage: 600 MG, 2X/DAY
     Route: 042
     Dates: start: 20160515, end: 20160527
  7. APROVEL [Concomitant]
     Active Substance: IRBESARTAN
     Dosage: 150 MG, UNK
     Route: 048
  8. NORVIR [Concomitant]
     Active Substance: RITONAVIR
     Dosage: 100 MG, UNK
     Route: 048
  9. GENTAMICIN. [Concomitant]
     Active Substance: GENTAMICIN

REACTIONS (2)
  - Sideroblastic anaemia [Recovering/Resolving]
  - Thrombocytopenia [Recovering/Resolving]

NARRATIVE: CASE EVENT DATE: 20160517
